FAERS Safety Report 9949300 (Version 2)
Quarter: 2014Q2

REPORT INFORMATION
  Report Type: Spontaneous
  Country: US (occurrence: None)
  Receive Date: 20140122
  Receipt Date: 20140421
  Transmission Date: 20141212
  Serious: No
  Sender: FDA-Public Use
  Company Number: AEGR000230

PATIENT
  Age: 35 Year
  Sex: Male
  Weight: 109.3 kg

DRUGS (5)
  1. JUXTAPID [Suspect]
     Indication: TYPE IIA HYPERLIPIDAEMIA
     Route: 048
     Dates: start: 20130901, end: 20140116
  2. WELCHOL (COLESEVELAM HYDROCHLORIDE) (625 MILLIGRAM, TABLET) (COLESEVELAM HYDROCHLORIDE) [Concomitant]
  3. NEXIUM I.V. [Concomitant]
  4. CRESTOR (ROSUVASTATIN CALCIUM) [Concomitant]
  5. METOPROLOL (METOPROLOL TARTRATE) [Concomitant]

REACTIONS (4)
  - Muscle spasms [None]
  - Product used for unknown indication [None]
  - Musculoskeletal discomfort [None]
  - Diarrhoea [None]
